FAERS Safety Report 23946252 (Version 1)
Quarter: 2024Q2

REPORT INFORMATION
  Report Type: Spontaneous
  Country: US (occurrence: None)
  Receive Date: 20240605
  Receipt Date: 20240605
  Transmission Date: 20240716
  Serious: Yes (Hospitalization)
  Sender: FDA-Public Use
  Company Number: None

PATIENT
  Age: 49 Year
  Sex: Male
  Weight: 72 kg

DRUGS (2)
  1. LURASIDONE HYDROCHLORIDE [Suspect]
     Active Substance: LURASIDONE HYDROCHLORIDE
     Indication: Post-traumatic stress disorder
     Dosage: OTHER QUANTITY : 1 TABLET(S);?
     Route: 048
     Dates: start: 20240215, end: 20240525
  2. THYROID [Concomitant]

REACTIONS (6)
  - Anger [None]
  - Anger [None]
  - Cardiac failure [None]
  - Pericarditis [None]
  - Circumstance or information capable of leading to medication error [None]
  - Victim of abuse [None]

NARRATIVE: CASE EVENT DATE: 20240524
